FAERS Safety Report 8604423-6 (Version None)
Quarter: 2012Q3

REPORT INFORMATION
  Report Type: 
  Country: None (occurrence: None)
  Receive Date: 20120820
  Receipt Date: 20120809
  Transmission Date: 20120928
  Serious: Yes (Hospitalization)
  Sender: FDA-Public Use
  Company Number: US-BAYER-2012-082739

PATIENT
  Age: 38 Year
  Sex: Female

DRUGS (1)
  1. SAFYRAL [Suspect]

REACTIONS (1)
  - PULMONARY EMBOLISM [None]
